FAERS Safety Report 4355578-3 (Version None)
Quarter: 2004Q2

REPORT INFORMATION
  Report Type: 
  Country: None (occurrence: None)
  Receive Date: 20040510
  Receipt Date: 20040421
  Transmission Date: 20050107
  Serious: Yes (Death, Hospitalization)
  Sender: FDA-Public Use
  Company Number: US-GLAXOSMITHKLINE-A0509414A

PATIENT
  Age: 54 Year
  Sex: Female
  Weight: 74 kg

DRUGS (11)
  1. BUPROPION HYDROCHLORIDE [Suspect]
     Indication: DEPRESSION
     Dates: start: 20000103, end: 20000531
  2. STUDY DRUG [Concomitant]
     Indication: PULMONARY HYPERTENSION
     Dosage: 300MG TWICE PER DAY
     Route: 048
     Dates: start: 20000103, end: 20000506
  3. DIGOXIN [Concomitant]
     Dates: start: 20000103, end: 20000107
  4. LASIX [Concomitant]
     Dates: start: 20000103, end: 20000601
  5. ALDACTONE [Concomitant]
     Dates: start: 20000103, end: 20000601
  6. NASONEX [Concomitant]
     Dates: start: 20000217, end: 20000601
  7. COUMADIN [Concomitant]
     Dates: start: 20000103, end: 20000624
  8. VALIUM [Concomitant]
     Dates: start: 20000104, end: 20000530
  9. BENADRYL [Concomitant]
     Dates: start: 20000104, end: 20000330
  10. XYLOCAINE [Concomitant]
     Dates: start: 20000330, end: 20000330
  11. K-DUR 10 [Concomitant]
     Dates: start: 20000601, end: 20000624

REACTIONS (9)
  - ABDOMINAL DISCOMFORT [None]
  - ABDOMINAL DISTENSION [None]
  - HEPATIC FAILURE [None]
  - HEPATITIS [None]
  - LIVER FUNCTION TEST ABNORMAL [None]
  - NAUSEA [None]
  - NECROSIS [None]
  - OEDEMA PERIPHERAL [None]
  - VOMITING [None]
